FAERS Safety Report 10175332 (Version 1)
Quarter: 2014Q2

REPORT INFORMATION
  Report Type: Report from Study
  Country: US (occurrence: US)
  Receive Date: 20140515
  Receipt Date: 20140515
  Transmission Date: 20141212
  Serious: Yes (Other)
  Sender: FDA-Public Use
  Company Number: US-ABBVIE-14K-163-1235264-00

PATIENT
  Sex: Female

DRUGS (5)
  1. HUMIRA [Suspect]
     Indication: PSORIASIS
  2. HUMIRA [Suspect]
  3. GABAPENTIN [Concomitant]
     Indication: FIBROMYALGIA
  4. ADDERALL [Concomitant]
     Indication: PRODUCT USED FOR UNKNOWN INDICATION
     Dosage: 30 SOMETHING TWICE DAILY
  5. VITAMINS [Concomitant]
     Indication: PRODUCT USED FOR UNKNOWN INDICATION

REACTIONS (6)
  - Tonsillolith [Unknown]
  - Tonsillectomy [Not Recovered/Not Resolved]
  - Malaise [Unknown]
  - Breath odour [Unknown]
  - Pain [Unknown]
  - Psoriasis [Unknown]
